FAERS Safety Report 7998455 (Version 3)
Quarter: 2017Q3

REPORT INFORMATION
  Report Type: Report from Study
  Country: DE (occurrence: DE)
  Receive Date: 20110620
  Receipt Date: 20170707
  Transmission Date: 20171128
  Serious: Yes (Death, Other)
  Sender: FDA-Public Use
  Company Number: DE-ALEXION-A201100853

PATIENT
  Sex: Female

DRUGS (3)
  1. SOLIRIS [Suspect]
     Active Substance: ECULIZUMAB
     Indication: HAEMOLYTIC URAEMIC SYNDROME
     Dosage: 900 MG UNK
     Route: 042
     Dates: start: 20110528
  2. HEPARIN [Concomitant]
     Active Substance: HEPARIN SODIUM
     Indication: PRODUCT USED FOR UNKNOWN INDICATION
     Route: 042
  3. SOLIRIS [Suspect]
     Active Substance: ECULIZUMAB
     Indication: OFF LABEL USE
     Dosage: 600 MG UNK
     Route: 042
     Dates: start: 20110601, end: 20110605

REACTIONS (9)
  - Brain oedema [Fatal]
  - Seizure [Fatal]
  - Acute kidney injury [Fatal]
  - Cerebrovascular accident [Fatal]
  - Coma [Fatal]
  - Haemorrhage [Fatal]
  - Haemolytic uraemic syndrome [Fatal]
  - Cerebral haemorrhage [Fatal]
  - Off label use [Unknown]
